FAERS Safety Report 24718268 (Version 2)
Quarter: 2024Q4

REPORT INFORMATION
  Report Type: Report from Study
  Country: US (occurrence: US)
  Receive Date: 20241210
  Receipt Date: 20241225
  Transmission Date: 20250115
  Serious: Yes (Other)
  Sender: ABBVIE
  Company Number: US-ABBVIE-6035869

PATIENT
  Age: 62 Year
  Sex: Female
  Weight: 86 kg

DRUGS (19)
  1. HUMIRA [Suspect]
     Active Substance: ADALIMUMAB
     Indication: Ankylosing spondylitis
     Dosage: FORM STRENGTH: 40 MILLIGRAM
     Route: 058
     Dates: start: 2023
  2. PYRIDOSTIGMINE [Concomitant]
     Active Substance: PYRIDOSTIGMINE
     Indication: Myasthenia gravis
  3. MONTELUKAST [Concomitant]
     Active Substance: MONTELUKAST SODIUM
     Indication: Hypersensitivity
  4. FLONASE [Concomitant]
     Active Substance: FLUTICASONE PROPIONATE
     Indication: Hypersensitivity
  5. NAPROXEN [Concomitant]
     Active Substance: NAPROXEN
     Indication: Pain
  6. ONDANSETRON [Concomitant]
     Active Substance: ONDANSETRON
     Indication: Nausea
  7. TRELEGY ELLIPTA [Concomitant]
     Active Substance: FLUTICASONE FUROATE\UMECLIDINIUM BROMIDE\VILANTEROL TRIFENATATE
     Indication: Asthma
  8. NIACIN [Concomitant]
     Active Substance: NIACIN
     Indication: Supplementation therapy
  9. OMEPRAZOLE [Concomitant]
     Active Substance: OMEPRAZOLE
     Indication: Gastrooesophageal reflux disease
  10. ALBUTEROL [Concomitant]
     Active Substance: ALBUTEROL
     Indication: Asthma
  11. VITAMIN D [Concomitant]
     Active Substance: VITAMIN D NOS
     Indication: Vitamin supplementation
  12. IRON [Concomitant]
     Active Substance: IRON
     Indication: Mineral supplementation
  13. TRAMADOL [Concomitant]
     Active Substance: TRAMADOL
     Indication: Pain
  14. BENZONATATE [Concomitant]
     Active Substance: BENZONATATE
     Indication: Cough
  15. ROSUVASTATIN [Concomitant]
     Active Substance: ROSUVASTATIN
     Indication: Blood cholesterol abnormal
  16. CALCIUM [Concomitant]
     Active Substance: CALCIUM
     Indication: Mineral supplementation
  17. ZINC [Concomitant]
     Active Substance: ZINC
     Indication: Mineral supplementation
  18. LEVOTHYROXINE [Concomitant]
     Active Substance: LEVOTHYROXINE
     Indication: Hypothyroidism
  19. ESTRADIOL [Concomitant]
     Active Substance: ESTRADIOL
     Indication: Hormone replacement therapy

REACTIONS (5)
  - Eye contusion [Recovered/Resolved]
  - Hepatic enzyme increased [Not Recovered/Not Resolved]
  - Giant cell arteritis [Not Recovered/Not Resolved]
  - Red blood cell sedimentation rate increased [Not Recovered/Not Resolved]
  - Protein total increased [Not Recovered/Not Resolved]

NARRATIVE: CASE EVENT DATE: 20241128
